FAERS Safety Report 9125636 (Version 1)
Quarter: 2013Q1

REPORT INFORMATION
  Report Type: Spontaneous
  Country: SE (occurrence: SE)
  Receive Date: 20130117
  Receipt Date: 20130117
  Transmission Date: 20140127
  Serious: Yes (Hospitalization)
  Sender: FDA-Public Use
  Company Number: SE-PFIZER INC-2013019016

PATIENT
  Age: 82 Year
  Sex: Male

DRUGS (5)
  1. VIAGRA [Suspect]
     Dosage: 50 MG, AS NEEDED
  2. GLYTRIN [Suspect]
     Dosage: UNK
     Route: 060
  3. LIPITOR [Concomitant]
     Dosage: UNK
  4. BISOPROLOL [Concomitant]
     Dosage: UNK
  5. TROMBYL [Concomitant]
     Dosage: UNK

REACTIONS (4)
  - Labelled drug-drug interaction medication error [Unknown]
  - Hypotension [Recovered/Resolved]
  - Nausea [Recovered/Resolved]
  - Malaise [Unknown]
